FAERS Safety Report 19037728 (Version 1)
Quarter: 2021Q1

REPORT INFORMATION
  Report Type: Spontaneous
  Country: US (occurrence: US)
  Receive Date: 20210322
  Receipt Date: 20210322
  Transmission Date: 20210420
  Serious: Yes (Other)
  Sender: FDA-Public Use
  Company Number: None

PATIENT
  Age: 23 Year
  Sex: Male
  Weight: 97.1 kg

DRUGS (5)
  1. DOCUSATE 100 MG PO BID [Concomitant]
     Dates: start: 20201204
  2. OLANZAPINE 20 MG PO BID [Concomitant]
     Dates: start: 20201204
  3. OMEPRAZOLE 20 MG PO QOD [Concomitant]
     Dates: start: 20201205
  4. BUPROPION IR [Suspect]
     Active Substance: BUPROPION
     Indication: PSYCHOTIC DISORDER
     Route: 048
     Dates: start: 20201222, end: 20210315
  5. FLUOXETINE 80 MG PO QAM [Concomitant]
     Dates: start: 20210105

REACTIONS (1)
  - Seizure [None]

NARRATIVE: CASE EVENT DATE: 20210314
